FAERS Safety Report 9331358 (Version 1)
Quarter: 2013Q2

REPORT INFORMATION
  Report Type: Spontaneous
  Country: JP (occurrence: JP)
  Receive Date: 20130605
  Receipt Date: 20130605
  Transmission Date: 20140414
  Serious: Yes (Death)
  Sender: FDA-Public Use
  Company Number: JP-JHP PHARMACEUTICALS, LLC-JHP201300328

PATIENT
  Sex: Male

DRUGS (2)
  1. DANTRIUM [Suspect]
     Indication: NEUROLEPTIC MALIGNANT SYNDROME
     Dosage: 40 MG, DAILY
     Route: 042
  2. DANTRIUM [Suspect]
     Dosage: 60 MG, DAILY
     Route: 042

REACTIONS (1)
  - Death [Fatal]
